FAERS Safety Report 5078599-4 (Version None)
Quarter: 2006Q3

REPORT INFORMATION
  Report Type: 
  Country: None (occurrence: None)
  Receive Date: 20060808
  Receipt Date: 20060719
  Transmission Date: 20061208
  Serious: Yes (Death, Hospitalization)
  Sender: FDA-Public Use
  Company Number: PK200605003886

PATIENT
  Age: 48 Year
  Sex: Male

DRUGS (1)
  1. GEMCITABINE [Suspect]
     Indication: LUNG CANCER METASTATIC
     Dates: start: 20050713, end: 20050906

REACTIONS (2)
  - HAEMORRHAGE [None]
  - THROMBOCYTOPENIA [None]
